FAERS Safety Report 9682454 (Version 1)
Quarter: 2013Q4

REPORT INFORMATION
  Report Type: Spontaneous
  Country: US (occurrence: US)
  Receive Date: 20131112
  Receipt Date: 20131112
  Transmission Date: 20140711
  Serious: No
  Sender: FDA-Public Use
  Company Number: US-009507513-1311USA001868

PATIENT
  Age: 56 Year
  Sex: Female
  Weight: 53.61 kg

DRUGS (13)
  1. PEGINTRON [Suspect]
     Dosage: 80 MICROGRAM/0.5 ML VIAL, QW
     Route: 058
  2. VICTRELIS [Suspect]
     Route: 048
  3. RIBAVIRIN (WARRICK) [Suspect]
     Route: 048
  4. CYMBALTA [Concomitant]
     Route: 048
  5. LANSOPRAZOLE [Concomitant]
     Route: 048
  6. IMITREX (SUMATRIPTAN) [Concomitant]
     Route: 048
  7. CHOLECALCIFEROL [Concomitant]
     Route: 048
  8. VITAMINS (UNSPECIFIED) [Concomitant]
     Route: 048
  9. PROBIOTICA [Concomitant]
     Route: 048
  10. CALCIUM (UNSPECIFIED) [Concomitant]
     Route: 048
  11. NEXIUM [Concomitant]
     Route: 048
  12. METHYLPHENIDATE [Concomitant]
     Route: 048
  13. IBUPROFEN [Concomitant]
     Route: 048

REACTIONS (5)
  - Palpitations [Unknown]
  - Skin atrophy [Unknown]
  - Dyspnoea [Unknown]
  - Productive cough [Unknown]
  - Rash [Unknown]
